FAERS Safety Report 13993442 (Version 1)
Quarter: 2017Q3

REPORT INFORMATION
  Report Type: Report from Study
  Country: US (occurrence: US)
  Receive Date: 20170920
  Receipt Date: 20170920
  Transmission Date: 20171128
  Serious: Yes (Death)
  Sender: FDA-Public Use
  Company Number: US-ACTELION-A-NJ2017-156313

PATIENT
  Age: 65 Year
  Sex: Female
  Weight: 92.97 kg

DRUGS (6)
  1. COUMADIN [Concomitant]
     Active Substance: WARFARIN SODIUM
  2. UPTRAVI [Suspect]
     Active Substance: SELEXIPAG
     Dosage: 1400 MCG, UNK
     Route: 048
  3. LETAIRIS [Concomitant]
     Active Substance: AMBRISENTAN
  4. UPTRAVI [Suspect]
     Active Substance: SELEXIPAG
     Indication: PULMONARY ARTERIAL HYPERTENSION
     Dosage: 1000 MCG, BID
     Route: 048
  5. UPTRAVI [Suspect]
     Active Substance: SELEXIPAG
     Dosage: 1200 MCG, BID
     Route: 048
  6. REVATIO [Concomitant]
     Active Substance: SILDENAFIL CITRATE

REACTIONS (11)
  - Back pain [Unknown]
  - Flatulence [Unknown]
  - Eructation [Unknown]
  - Dyspnoea [Unknown]
  - Death [Fatal]
  - Insomnia [Unknown]
  - Myalgia [Unknown]
  - Dyspepsia [Unknown]
  - Abdominal distension [Unknown]
  - Nausea [Unknown]
  - Chest pain [Unknown]

NARRATIVE: CASE EVENT DATE: 201706
